FAERS Safety Report 11159101 (Version 12)
Quarter: 2018Q2

REPORT INFORMATION
  Report Type: Spontaneous
  Country: US (occurrence: US)
  Receive Date: 20150603
  Receipt Date: 20180404
  Transmission Date: 20180711
  Serious: Yes (Hospitalization, Disabling, Other)
  Sender: FDA-Public Use
  Company Number: US-009507513-1506USA001276

PATIENT
  Sex: Female
  Weight: 77.1 kg

DRUGS (1)
  1. NUVARING [Suspect]
     Active Substance: ETHINYL ESTRADIOL\ETONOGESTREL
     Indication: CONTRACEPTION
     Dosage: 0.12-0.015 MG/24 HR, LEAVE IN PLACE FOR 3 WKS THEN REMOVE RING, 1 WK LATER PLACE A NEW RING IN VAGIN
     Route: 067
     Dates: end: 20130620

REACTIONS (33)
  - Mass [Unknown]
  - Dysmenorrhoea [Unknown]
  - Back pain [Unknown]
  - Pruritus [Unknown]
  - Left ventricular hypertrophy [Unknown]
  - Hepatic steatosis [Unknown]
  - Diarrhoea [Unknown]
  - Pain in extremity [Unknown]
  - Embolism [Unknown]
  - Radiculopathy [Unknown]
  - Tendonitis [Unknown]
  - Sinusitis [Unknown]
  - Pleuritic pain [Unknown]
  - Fatigue [Unknown]
  - Peripheral swelling [Unknown]
  - Pulmonary hypertension [Unknown]
  - Deep vein thrombosis [Unknown]
  - Pulmonary embolism [Recovering/Resolving]
  - Gastrooesophageal reflux disease [Unknown]
  - Headache [Unknown]
  - Weight increased [Unknown]
  - Limb discomfort [Unknown]
  - Sinus tachycardia [Unknown]
  - Hypoventilation [Unknown]
  - Malaise [Unknown]
  - Exercise tolerance decreased [Unknown]
  - Drug hypersensitivity [Recovered/Resolved]
  - Deep vein thrombosis [Unknown]
  - Chest pain [Unknown]
  - Type V hyperlipidaemia [Unknown]
  - Pain in extremity [Unknown]
  - Drug hypersensitivity [Unknown]
  - Essential hypertension [Unknown]

NARRATIVE: CASE EVENT DATE: 201306
